FAERS Safety Report 5117160-X (Version None)
Quarter: 2006Q3

REPORT INFORMATION
  Report Type: 
  Country: None (occurrence: None)
  Receive Date: 20060927
  Receipt Date: 20060927
  Transmission Date: 20061208
  Serious: Yes (Other)
  Sender: FDA-Public Use
  Company Number: None

PATIENT
  Age: 5 Year
  Sex: Male
  Weight: 22 kg

DRUGS (1)
  1. CLINDAMYCIN [Suspect]
     Indication: OSTEOMYELITIS
     Dosage: 220 MG Q8H IV
     Route: 042
     Dates: start: 20060825, end: 20060924

REACTIONS (1)
  - RASH [None]
